FAERS Safety Report 17418910 (Version 3)
Quarter: 2020Q2

REPORT INFORMATION
  Report Type: Report from Study
  Country: None (occurrence: US)
  Receive Date: 20200214
  Receipt Date: 20200504
  Transmission Date: 20200713
  Serious: Yes (Other)
  Sender: FDA-Public Use
  Company Number: US-ABBVIE-20K-163-3273666-00

PATIENT
  Sex: Male

DRUGS (2)
  1. HUMIRA [Suspect]
     Active Substance: ADALIMUMAB
     Route: 058
  2. HUMIRA [Suspect]
     Active Substance: ADALIMUMAB
     Indication: PSORIASIS
     Route: 058

REACTIONS (7)
  - Bronchitis [Recovered/Resolved]
  - Sleep apnoea syndrome [Unknown]
  - Joint swelling [Unknown]
  - Meniscus injury [Recovering/Resolving]
  - Hypertension [Unknown]
  - Influenza [Recovered/Resolved]
  - Arthralgia [Not Recovered/Not Resolved]
